FAERS Safety Report 23728544 (Version 1)
Quarter: 2024Q2

REPORT INFORMATION
  Report Type: Spontaneous
  Country: US (occurrence: None)
  Receive Date: 20240409
  Receipt Date: 20240409
  Transmission Date: 20240716
  Serious: No
  Sender: FDA-Public Use
  Company Number: None

PATIENT
  Age: 92 Year
  Sex: Male
  Weight: 83.91 kg

DRUGS (1)
  1. EZETIMIBE [Suspect]
     Active Substance: EZETIMIBE

REACTIONS (3)
  - Dyspnoea [None]
  - Hypertension [None]
  - Muscle disorder [None]

NARRATIVE: CASE EVENT DATE: 20230801
